FAERS Safety Report 8132917-9 (Version None)
Quarter: 2012Q1

REPORT INFORMATION
  Report Type: 
  Country: None (occurrence: None)
  Receive Date: 20120208
  Receipt Date: 20120126
  Transmission Date: 20120608
  Serious: Yes (Life-Threatening)
  Sender: FDA-Public Use
  Company Number: THQ2012A00747

PATIENT
  Age: 78 Year
  Sex: Male

DRUGS (4)
  1. BLOPRESS (CANDESARTAN CILEXETIL) [Concomitant]
  2. BASEN (VOGLIBOSE) [Concomitant]
  3. ACTOS [Suspect]
     Dosage: PER ORAL
     Route: 048
     Dates: start: 20050101, end: 20100101
  4. INSULIN [Concomitant]

REACTIONS (2)
  - OEDEMA [None]
  - TRANSITIONAL CELL CARCINOMA [None]
